FAERS Safety Report 8914692 (Version 1)
Quarter: 2012Q4

REPORT INFORMATION
  Report Type: 
  Country: US (occurrence: US)
  Receive Date: 20121119
  Receipt Date: 20121119
  Transmission Date: 20130627
  Serious: Yes (Other)
  Sender: FDA-Public Use
  Company Number: US-ROXANE LABORATORIES, INC.-2012-RO-02371RO

PATIENT
  Age: 56 Year
  Sex: Male

DRUGS (12)
  1. DIGOXIN [Suspect]
  2. DALIRESP [Suspect]
     Indication: ASTHMA
     Dosage: 500 mcg
     Dates: start: 201209, end: 201210
  3. PRILOSEC [Concomitant]
     Indication: GASTROOESOPHAGEAL REFLUX DISEASE
     Dosage: 20 mg
  4. CLARITIN [Concomitant]
     Indication: MULTIPLE ALLERGIES
  5. BENADRYL [Concomitant]
     Indication: MULTIPLE ALLERGIES
     Dosage: 25 mg
  6. BENADRYL [Concomitant]
     Indication: INSOMNIA
  7. METOPROLOL TARTRATE [Concomitant]
     Indication: HYPERTENSION
     Dosage: 50 mg
  8. NAPROXEN SODIUM [Concomitant]
     Indication: PAIN
     Dosage: 440 mg
  9. SERTRALINE [Concomitant]
     Indication: DEPRESSION
     Dosage: 100 mg
  10. SPIRIVA [Concomitant]
     Indication: ASTHMA
  11. FUROSEMIDE [Concomitant]
     Indication: FLUID RETENTION
     Dosage: 80 mg
  12. ADVAIR [Concomitant]
     Indication: ASTHMA

REACTIONS (2)
  - Suicide attempt [Recovered/Resolved]
  - Depression [Recovered/Resolved]
